FAERS Safety Report 5885550-3 (Version None)
Quarter: 2008Q3

REPORT INFORMATION
  Report Type: 
  Country: None (occurrence: None)
  Receive Date: 20080916
  Receipt Date: 20080912
  Transmission Date: 20090109
  Serious: Yes (Other)
  Sender: FDA-Public Use
  Company Number: AL-ABBOTT-08P-144-0469962-00

PATIENT
  Age: 4 Year
  Sex: Male

DRUGS (2)
  1. VALPROATE SODIUM [Suspect]
     Indication: CONVULSION
  2. PHENOBARBITAL TAB [Suspect]
     Indication: CONVULSION
     Dosage: NOT REPORTED

REACTIONS (1)
  - REYE'S SYNDROME [None]
